FAERS Safety Report 17835013 (Version 2)
Quarter: 2020Q2

REPORT INFORMATION
  Report Type: Spontaneous
  Country: US (occurrence: US)
  Receive Date: 20200528
  Receipt Date: 20200623
  Transmission Date: 20200714
  Serious: Yes (Hospitalization, Other)
  Sender: FDA-Public Use
  Company Number: US-UNITED THERAPEUTICS-UNT-2020-007855

PATIENT
  Age: 57 Year
  Sex: Female
  Weight: 70.3 kg

DRUGS (3)
  1. REMODULIN [Suspect]
     Active Substance: TREPROSTINIL
     Indication: PULMONARY ARTERIAL HYPERTENSION
     Dosage: UNK , CONTINUING
     Route: 058
     Dates: start: 20190325
  2. REMODULIN [Suspect]
     Active Substance: TREPROSTINIL
     Dosage: 0.108 ?G/KG, CONTINUING
     Route: 058
  3. REMODULIN [Suspect]
     Active Substance: TREPROSTINIL
     Dosage: 0.122 ?G/KG, CONTINUING
     Route: 058
     Dates: start: 20200505

REACTIONS (3)
  - Pericardial effusion [Unknown]
  - Cardiac failure [Unknown]
  - Pulmonary arterial hypertension [Unknown]

NARRATIVE: CASE EVENT DATE: 20200525
